FAERS Safety Report 5269110-3 (Version None)
Quarter: 2007Q1

REPORT INFORMATION
  Report Type: 
  Country: None (occurrence: None)
  Receive Date: 20061213
  Receipt Date: 20030729
  Transmission Date: 20070707
  Serious: Yes (Other)
  Sender: FDA-Public Use
  Company Number: 2003UW09537

PATIENT
  Age: 68 Year
  Sex: Female

DRUGS (1)
  1. IRESSA [Suspect]
     Indication: NON-SMALL CELL LUNG CANCER
     Dosage: 250 MG PO
     Route: 048
     Dates: start: 20030601

REACTIONS (5)
  - ACNE [None]
  - BURNING SENSATION [None]
  - DIARRHOEA [None]
  - DRY SKIN [None]
  - ORAL CANDIDIASIS [None]
